FAERS Safety Report 5662342-1 (Version None)
Quarter: 2008Q1

REPORT INFORMATION
  Report Type: 
  Country: None (occurrence: None)
  Receive Date: 20080312
  Receipt Date: 20080304
  Transmission Date: 20080703
  Serious: Yes (Other)
  Sender: FDA-Public Use
  Company Number: FR-PFIZER INC-2008021318

PATIENT
  Age: 45 Year
  Sex: Male

DRUGS (2)
  1. CAMPTO [Suspect]
     Indication: COLORECTAL CANCER METASTATIC
  2. CETUXIMAB [Suspect]
     Indication: COLORECTAL CANCER METASTATIC

REACTIONS (1)
  - CARDIAC FAILURE [None]
